FAERS Safety Report 14317976 (Version 2)
Quarter: 2024Q1

REPORT INFORMATION
  Report Type: Spontaneous
  Country: GB (occurrence: GB)
  Receive Date: 20171222
  Receipt Date: 20240311
  Transmission Date: 20240410
  Serious: Yes (Hospitalization, Other)
  Sender: FDA-Public Use
  Company Number: GB-AUROBINDO-AUR-APL-2017-46433

PATIENT
  Age: 70 Year
  Sex: Male

DRUGS (1)
  1. SERTRALINE [Suspect]
     Active Substance: SERTRALINE HYDROCHLORIDE
     Indication: Mid-life crisis
     Dosage: ()
     Route: 065
     Dates: start: 201612

REACTIONS (2)
  - Feeling abnormal [Not Recovered/Not Resolved]
  - Suicide attempt [Unknown]
